FAERS Safety Report 5008493-6 (Version None)
Quarter: 2006Q2

REPORT INFORMATION
  Report Type: 
  Country: None (occurrence: None)
  Receive Date: 20060522
  Receipt Date: 20060522
  Transmission Date: 20061013
  Serious: Yes (Other)
  Sender: FDA-Public Use
  Company Number: None

PATIENT
  Age: 61 Year
  Sex: Female
  Weight: 63.05 kg

DRUGS (6)
  1. CIPROFLOXACIN [Suspect]
     Indication: DIVERTICULITIS
     Dosage: 1 TABLET TWICE DAILY ORALLY
     Route: 048
     Dates: start: 20051029
  2. METRONIDAZOLE [Suspect]
     Dosage: 1 TABLET TWICE DAILY ORALLY
     Route: 048
  3. LEVOTHYROXIN [Concomitant]
  4. PRILOSEC [Concomitant]
  5. ATENOLOL [Concomitant]
  6. ARIMIDEX [Concomitant]

REACTIONS (10)
  - BODY TEMPERATURE DECREASED [None]
  - BURNING SENSATION [None]
  - DIVERTICULITIS [None]
  - FATIGUE [None]
  - FEELING ABNORMAL [None]
  - HYPERTHYROIDISM [None]
  - INFLUENZA LIKE ILLNESS [None]
  - NEUROPATHY PERIPHERAL [None]
  - OPTIC NEUROPATHY [None]
  - PERIPHERAL COLDNESS [None]
